FAERS Safety Report 20580584 (Version 1)
Quarter: 2022Q1

REPORT INFORMATION
  Report Type: Spontaneous
  Country: CA (occurrence: CA)
  Receive Date: 20220311
  Receipt Date: 20220311
  Transmission Date: 20220424
  Serious: Yes (Hospitalization, Other)
  Sender: FDA-Public Use
  Company Number: CA-ABBVIE-22K-028-4307498-00

PATIENT
  Age: 47 Year
  Sex: Female
  Weight: 82 kg

DRUGS (1)
  1. VALPROIC ACID [Suspect]
     Active Substance: VALPROIC ACID
     Indication: Bipolar disorder
     Route: 048

REACTIONS (10)
  - Bipolar disorder [Unknown]
  - Fatigue [Unknown]
  - Constipation [Unknown]
  - Nervousness [Unknown]
  - Somnolence [Unknown]
  - Daydreaming [Unknown]
  - Back pain [Unknown]
  - Weight decreased [Unknown]
  - Weight increased [Unknown]
  - Product dose omission issue [Unknown]
